FAERS Safety Report 8345255-6 (Version None)
Quarter: 2012Q2

REPORT INFORMATION
  Report Type: 
  Country: None (occurrence: None)
  Receive Date: 20120508
  Receipt Date: 20120427
  Transmission Date: 20120825
  Serious: Yes (Hospitalization)
  Sender: FDA-Public Use
  Company Number: US-CELGENEUS-163-21880-12050009

PATIENT
  Sex: Female
  Weight: 65.83 kg

DRUGS (18)
  1. OXYCODONE HCL [Concomitant]
     Dosage: 60 MILLIGRAM
     Route: 048
     Dates: start: 20120401
  2. FENTANYL [Concomitant]
     Route: 065
     Dates: start: 20120201
  3. AMBIEN [Concomitant]
     Dosage: 10 MILLIGRAM
     Route: 048
     Dates: start: 20070101
  4. CALTRATE D [Concomitant]
     Dosage: 600/400
     Route: 048
     Dates: start: 20090101
  5. M.V.I. [Concomitant]
     Route: 065
  6. REVLIMID [Suspect]
     Dosage: 25 MILLIGRAM
     Route: 048
     Dates: start: 20120214, end: 20120301
  7. OXYCODONE HCL [Concomitant]
     Dosage: 20 MILLIGRAM
     Route: 048
     Dates: start: 20120201
  8. CYMBALTA [Concomitant]
     Dosage: 30/60MG
     Route: 048
     Dates: start: 20110101
  9. DOCUSATE [Concomitant]
     Route: 048
     Dates: start: 20090101
  10. SENNA-MINT WAF [Concomitant]
     Route: 048
     Dates: start: 20120401
  11. OXYCODONE HCL [Concomitant]
     Dosage: 10 MILLIGRAM
     Route: 048
     Dates: start: 20120401
  12. RECLAST [Concomitant]
     Dosage: 5 MILLIGRAM
     Route: 048
     Dates: start: 20080101
  13. REVLIMID [Suspect]
     Dosage: 5 MILLIGRAM
     Route: 048
     Dates: start: 20120401
  14. NEURONTIN [Concomitant]
     Dosage: 600 MILLIGRAM
     Route: 048
     Dates: start: 20090101
  15. XANAX [Concomitant]
     Dosage: .5 MILLIGRAM
     Route: 048
  16. ARANESP [Concomitant]
     Route: 065
  17. DULCOLAX [Concomitant]
     Route: 048
     Dates: start: 20120401
  18. LORAZEPAM [Concomitant]
     Dosage: .25 MILLIGRAM
     Route: 048
     Dates: start: 20120401

REACTIONS (3)
  - LIVER FUNCTION TEST ABNORMAL [None]
  - MENTAL STATUS CHANGES [None]
  - LIVER DISORDER [None]
